FAERS Safety Report 6086907-0 (Version None)
Quarter: 2009Q1

REPORT INFORMATION
  Report Type: 
  Country: None (occurrence: None)
  Receive Date: 20090219
  Receipt Date: 20090211
  Transmission Date: 20090719
  Serious: Yes (Hospitalization)
  Sender: FDA-Public Use
  Company Number: GXBR2009US00469

PATIENT
  Age: 68 Year
  Sex: Male

DRUGS (6)
  1. INDOMETHACIN [Suspect]
     Dosage: 75 MG, ONCE/SINGLE, ORAL
     Route: 048
     Dates: start: 20090107, end: 20090107
  2. ALLOPURINOL [Concomitant]
  3. SIMVASTATIN [Concomitant]
  4. PLAVIX [Concomitant]
  5. COREG [Concomitant]
  6. ALTACE [Concomitant]

REACTIONS (7)
  - ANXIETY [None]
  - ASTHENIA [None]
  - CONFUSIONAL STATE [None]
  - DYSSTASIA [None]
  - FEELING ABNORMAL [None]
  - HYPERHIDROSIS [None]
  - TREMOR [None]
